FAERS Safety Report 17286931 (Version 2)
Quarter: 2020Q1

REPORT INFORMATION
  Report Type: Report from Study
  Country: JP (occurrence: JP)
  Receive Date: 20200120
  Receipt Date: 20200318
  Transmission Date: 20200409
  Serious: Yes (Other)
  Sender: FDA-Public Use
  Company Number: JP-SA-2020SA011138

PATIENT
  Age: 59 Year
  Sex: Female
  Weight: 50.9 kg

DRUGS (23)
  1. AFLIBERCEPT [Suspect]
     Active Substance: AFLIBERCEPT
     Dosage: 4 MG/KG, QOW
     Route: 041
     Dates: start: 20190603, end: 20190617
  2. IRINOTECAN [Suspect]
     Active Substance: IRINOTECAN
     Indication: COLON CANCER
     Dosage: 150 MG/M2, 1X
     Route: 065
     Dates: start: 20190515, end: 20190515
  3. AFLIBERCEPT [Suspect]
     Active Substance: AFLIBERCEPT
     Dosage: 4 MG/KG, QOW
     Route: 041
     Dates: start: 20190703, end: 20190925
  4. FLUOROURACIL. [Suspect]
     Active Substance: FLUOROURACIL
     Dosage: 320 MG/M2, 1X
     Route: 040
     Dates: start: 20190603, end: 20190603
  5. FLUOROURACIL. [Suspect]
     Active Substance: FLUOROURACIL
     Dosage: 280 MG/M2, 1X
     Route: 040
     Dates: start: 20190617, end: 20190617
  6. FLUOROURACIL. [Suspect]
     Active Substance: FLUOROURACIL
     Dosage: 1680 MG/M2, QOW
     Route: 041
     Dates: start: 20191016, end: 20191030
  7. AFLIBERCEPT [Suspect]
     Active Substance: AFLIBERCEPT
     Dosage: 4 MG/KG, QOW
     Route: 041
     Dates: start: 20191016, end: 20191030
  8. FLUOROURACIL. [Suspect]
     Active Substance: FLUOROURACIL
     Indication: COLON CANCER
     Dosage: 2400 MG/M2, 1X
     Route: 041
     Dates: start: 20190515, end: 20190515
  9. CALCIUM FOLINATE [Suspect]
     Active Substance: LEUCOVORIN CALCIUM
     Dosage: 200 MG/M2, QOW
     Route: 065
     Dates: start: 20190703, end: 20190925
  10. CALCIUM FOLINATE [Suspect]
     Active Substance: LEUCOVORIN CALCIUM
     Dosage: 200 MG/M2, QOW
     Route: 065
     Dates: start: 20191016, end: 20191030
  11. IRINOTECAN [Suspect]
     Active Substance: IRINOTECAN
     Dosage: 105 MG/M2, 1X
     Route: 065
     Dates: start: 20190617, end: 20190617
  12. FLUOROURACIL. [Suspect]
     Active Substance: FLUOROURACIL
     Dosage: 1680 MG/M2, QOW
     Route: 041
     Dates: start: 20190703, end: 20190925
  13. CALCIUM FOLINATE [Suspect]
     Active Substance: LEUCOVORIN CALCIUM
     Dosage: 200 MG/M2, QOW
     Route: 065
     Dates: start: 20190603, end: 20190617
  14. IRINOTECAN [Suspect]
     Active Substance: IRINOTECAN
     Dosage: 105 MG/M2, QOW
     Route: 065
     Dates: start: 20190703, end: 20190925
  15. IRINOTECAN [Suspect]
     Active Substance: IRINOTECAN
     Dosage: 105 MG/M2, QOW
     Route: 065
     Dates: start: 20191016, end: 20191030
  16. FLUOROURACIL. [Suspect]
     Active Substance: FLUOROURACIL
     Dosage: 1920 MG/M2, 1X
     Route: 041
     Dates: start: 20190603, end: 20190603
  17. AFLIBERCEPT [Suspect]
     Active Substance: AFLIBERCEPT
     Indication: COLON CANCER
     Dosage: 4 MG/KG, 1X
     Route: 041
     Dates: start: 20190515, end: 20190515
  18. FLUOROURACIL. [Suspect]
     Active Substance: FLUOROURACIL
     Dosage: 1680 MG/M2, 1X
     Route: 041
     Dates: start: 20190617, end: 20190617
  19. CALCIUM FOLINATE [Suspect]
     Active Substance: LEUCOVORIN CALCIUM
     Indication: COLON CANCER
     Dosage: 200 MG/M2, 1X
     Route: 065
     Dates: start: 20190515, end: 20190515
  20. IRINOTECAN [Suspect]
     Active Substance: IRINOTECAN
     Dosage: 120 MG/M2, 1X
     Route: 065
     Dates: start: 20190603, end: 20190603
  21. FLUOROURACIL. [Suspect]
     Active Substance: FLUOROURACIL
     Dosage: 400 MG/M2, 1X
     Route: 040
     Dates: start: 20190515, end: 20190515
  22. FLUOROURACIL. [Suspect]
     Active Substance: FLUOROURACIL
     Dosage: 280 MG/M2, QOW
     Route: 040
     Dates: start: 20190703, end: 20190925
  23. FLUOROURACIL. [Suspect]
     Active Substance: FLUOROURACIL
     Dosage: 280 MG/M2, QOW
     Route: 040
     Dates: start: 20191016, end: 20191030

REACTIONS (4)
  - Neutrophil count decreased [Recovered/Resolved]
  - Diarrhoea [Recovered/Resolved]
  - White blood cell count decreased [Recovered/Resolved]
  - Frequent bowel movements [Recovered/Resolved]

NARRATIVE: CASE EVENT DATE: 20190520
